FAERS Safety Report 6136047-7 (Version None)
Quarter: 2009Q1

REPORT INFORMATION
  Report Type: 
  Country: None (occurrence: None)
  Receive Date: 20090330
  Receipt Date: 20090318
  Transmission Date: 20090719
  Serious: Yes (Hospitalization)
  Sender: FDA-Public Use
  Company Number: NZ-JNJFOC-20081005303

PATIENT
  Sex: Male
  Weight: 80 kg

DRUGS (6)
  1. HALDOL [Suspect]
     Route: 030
  2. HALDOL [Suspect]
     Route: 030
  3. HALDOL [Suspect]
     Indication: PSYCHOTIC DISORDER
     Route: 030
  4. HALDOL [Suspect]
     Indication: SCHIZOPHRENIA
     Route: 030
  5. RISPERIDONE [Suspect]
     Indication: SCHIZOPHRENIA
     Dosage: AT NIGHT
     Route: 048
  6. EPILIM [Concomitant]
     Route: 065

REACTIONS (2)
  - AGGRESSION [None]
  - THINKING ABNORMAL [None]
